FAERS Safety Report 8992483 (Version 1)
Quarter: 2012Q4

REPORT INFORMATION
  Report Type: 
  Country: FR (occurrence: FR)
  Receive Date: 20121231
  Receipt Date: 20121231
  Transmission Date: 20130627
  Serious: Yes (Hospitalization)
  Sender: FDA-Public Use
  Company Number: PHHY2012FR117950

PATIENT
  Sex: Female

DRUGS (8)
  1. NISIS [Suspect]
     Indication: HYPERTENSION
     Route: 048
     Dates: start: 201205, end: 201206
  2. LASILIX [Suspect]
     Route: 048
     Dates: start: 201205, end: 201206
  3. DIFFU K [Concomitant]
     Dosage: UNK UKN, UNK
     Route: 048
     Dates: start: 201205, end: 201206
  4. BACTRIM FORTE [Concomitant]
     Route: 048
     Dates: start: 201205, end: 201206
  5. PREVISCAN [Concomitant]
     Dosage: 20 mg, UNK
     Route: 048
     Dates: start: 201205
  6. CORDARONE [Concomitant]
     Route: 048
     Dates: start: 201205, end: 201206
  7. FRACTAL [Concomitant]
     Route: 048
     Dates: start: 201205
  8. AMLOR [Concomitant]
     Route: 048
     Dates: start: 201205, end: 201206

REACTIONS (4)
  - Dehydration [Recovered/Resolved]
  - Renal failure acute [Recovered/Resolved]
  - Hyperkalaemia [Recovered/Resolved]
  - Orthostatic hypotension [Recovered/Resolved]
